FAERS Safety Report 18093586 (Version 1)
Quarter: 2020Q3

REPORT INFORMATION
  Report Type: Spontaneous
  Country: IT (occurrence: IT)
  Receive Date: 20200730
  Receipt Date: 20200730
  Transmission Date: 20201103
  Serious: Yes (Hospitalization)
  Sender: FDA-Public Use
  Company Number: IT-PFIZER INC-2020288371

PATIENT
  Age: 57 Year
  Sex: Female
  Weight: 70 kg

DRUGS (3)
  1. METHYLPREDNISOLONE ACETATE. [Suspect]
     Active Substance: METHYLPREDNISOLONE ACETATE
     Indication: BURSITIS
     Dosage: 80 MG, SINGLE
     Route: 014
     Dates: start: 20200715, end: 20200715
  2. LIDOCAINE. [Interacting]
     Active Substance: LIDOCAINE
     Indication: BURSITIS
     Dosage: 10 ML, SINGLE
     Route: 014
     Dates: start: 20200715, end: 20200715
  3. NIMESULIDE [Concomitant]
     Active Substance: NIMESULIDE
     Indication: BONE PAIN
     Dosage: 100 MG, 1X/DAY
     Dates: start: 20200713, end: 20200715

REACTIONS (7)
  - Dysstasia [Recovered/Resolved]
  - Discharge [Recovered/Resolved]
  - Motor dysfunction [Recovered/Resolved]
  - Gait disturbance [Recovered/Resolved]
  - Loss of consciousness [Recovered/Resolved]
  - Dysarthria [Recovered/Resolved]
  - Drug interaction [Recovered/Resolved]

NARRATIVE: CASE EVENT DATE: 20200715
